FAERS Safety Report 9232924 (Version 1)
Quarter: 2013Q2

REPORT INFORMATION
  Report Type: Spontaneous
  Country: US (occurrence: None)
  Receive Date: 20130415
  Receipt Date: 20130415
  Transmission Date: 20140414
  Serious: Yes (Life-Threatening, Other)
  Sender: FDA-Public Use
  Company Number: None

PATIENT
  Age: 48 Year
  Sex: Female
  Weight: 80.74 kg

DRUGS (2)
  1. LYSTEDA [Suspect]
     Indication: MENORRHAGIA
     Dosage: 2 PILLS 3 TIMES PER DAY PO
     Route: 048
  2. MELOXICAM [Concomitant]

REACTIONS (1)
  - Deep vein thrombosis [None]
